FAERS Safety Report 4385488-7 (Version None)
Quarter: 2004Q2

REPORT INFORMATION
  Report Type: 
  Country: None (occurrence: None)
  Receive Date: 20040622
  Receipt Date: 20040609
  Transmission Date: 20050107
  Serious: Yes (Life-Threatening)
  Sender: FDA-Public Use
  Company Number: AT-2004-026846

PATIENT
  Sex: Female

DRUGS (3)
  1. ULTRAVIST 370 [Suspect]
     Indication: ARTERIOGRAM CORONARY
     Dosage: 150 ML, 1 DOSE, INTRA-ARTERIAL
     Route: 013
     Dates: start: 20040609, end: 20040609
  2. DIBONDRIN (DIPHENHYDRAMINE HYDROCHLORIDE) [Concomitant]
  3. SOLU-DACORTIN (PREDNISOLONE SODIUM SUCCINATE) [Concomitant]

REACTIONS (5)
  - ANAPHYLACTIC SHOCK [None]
  - CONTRAST MEDIA REACTION [None]
  - EXANTHEM [None]
  - FACE OEDEMA [None]
  - URTICARIA [None]
